FAERS Safety Report 8839933 (Version 2)
Quarter: 2012Q4

REPORT INFORMATION
  Report Type: 
  Country: US (occurrence: US)
  Receive Date: 20121015
  Receipt Date: 20121115
  Transmission Date: 20130627
  Serious: Yes (Other)
  Sender: FDA-Public Use
  Company Number: US-BAYER-2012-105634

PATIENT
  Age: 21 Year
  Sex: Female

DRUGS (1)
  1. MIRENA [Suspect]
     Indication: CONTRACEPTION
     Dosage: 20 mcg/24hr, CONT
     Route: 015
     Dates: start: 20120516

REACTIONS (7)
  - Fall [None]
  - Traumatic haemorrhage [None]
  - Hypomenorrhoea [None]
  - Pelvic pain [None]
  - Genital haemorrhage [None]
  - Device issue [None]
  - Vaginal haemorrhage [None]
